FAERS Safety Report 6084414-2 (Version None)
Quarter: 2009Q1

REPORT INFORMATION
  Report Type: 
  Country: None (occurrence: None)
  Receive Date: 20090219
  Receipt Date: 20090218
  Transmission Date: 20090719
  Serious: Yes (Hospitalization)
  Sender: FDA-Public Use
  Company Number: B0524174A

PATIENT
  Age: 36 Year
  Sex: Female

DRUGS (6)
  1. MALARONE [Suspect]
     Indication: MALARIA
     Dosage: 4TAB PER DAY
     Route: 048
     Dates: start: 20080315, end: 20080319
  2. RENAGEL [Concomitant]
     Route: 048
  3. GAVISCON [Concomitant]
  4. MYOLASTAN [Concomitant]
  5. PYOSTACINE [Concomitant]
  6. NEXIUM [Concomitant]

REACTIONS (5)
  - ANAEMIA MEGALOBLASTIC [None]
  - GASTROINTESTINAL DISORDER [None]
  - MYELOID MATURATION ARREST [None]
  - PAIN [None]
  - PANCYTOPENIA [None]
